FAERS Safety Report 9448284 (Version 1)
Quarter: 2013Q3

REPORT INFORMATION
  Report Type: Spontaneous
  Country: FR (occurrence: FR)
  Receive Date: 20130808
  Receipt Date: 20130808
  Transmission Date: 20140515
  Serious: Yes (Hospitalization)
  Sender: FDA-Public Use
  Company Number: FR-PFIZER INC-2013228450

PATIENT
  Age: 15 Month
  Sex: Male
  Weight: 13.2 kg

DRUGS (1)
  1. ADVIL ENFANTS ET NOURRISSONS [Suspect]
     Indication: GASTROENTERITIS
     Dosage: 1 DOSE WEIGHT, 2 DOSES IN 2 DAYS
     Route: 048
     Dates: start: 20130613, end: 20130615

REACTIONS (3)
  - Haematemesis [Recovered/Resolved]
  - Gastric haemorrhage [Recovered/Resolved]
  - Gastritis haemorrhagic [Recovered/Resolved]
